FAERS Safety Report 9461568 (Version 1)
Quarter: 2013Q3

REPORT INFORMATION
  Report Type: Spontaneous
  Country: IT (occurrence: IT)
  Receive Date: 20130816
  Receipt Date: 20130816
  Transmission Date: 20140515
  Serious: Yes (Hospitalization)
  Sender: FDA-Public Use
  Company Number: IT-PFIZER INC-2013236533

PATIENT
  Age: 56 Year
  Sex: Female

DRUGS (2)
  1. VENLAFAXINE HCL [Suspect]
     Dosage: 40 TABLETS OF 150MG
     Route: 048
     Dates: start: 20130302, end: 20130302
  2. RIVOTRIL [Suspect]
     Dosage: 20 TABLETS OF 2 MG
     Route: 048
     Dates: start: 20130302, end: 20130302

REACTIONS (7)
  - Overdose [Recovering/Resolving]
  - Sopor [Recovering/Resolving]
  - Hypoventilation [Recovering/Resolving]
  - Abdominal pain [Recovering/Resolving]
  - Drug abuse [Recovering/Resolving]
  - Breath sounds abnormal [Recovering/Resolving]
  - Alcohol poisoning [Recovering/Resolving]
